FAERS Safety Report 5735032-4 (Version None)
Quarter: 2008Q2

REPORT INFORMATION
  Report Type: 
  Country: None (occurrence: None)
  Receive Date: 20080512
  Receipt Date: 20080505
  Transmission Date: 20081010
  Serious: Yes (Hospitalization)
  Sender: FDA-Public Use
  Company Number: ES-ROCHE-383143

PATIENT
  Sex: Male
  Weight: 85 kg

DRUGS (18)
  1. DACLIZUMAB [Suspect]
     Dosage: AS PER PROTOCOL.
     Route: 042
     Dates: start: 20040921, end: 20040921
  2. DACLIZUMAB [Suspect]
     Dosage: FOR A TOTAL OF 4 DOSES AS PER PROTOCOL.
     Route: 042
     Dates: end: 20041117
  3. MYCOPHENOLATE MOFETIL [Suspect]
     Route: 048
     Dates: start: 20040921, end: 20050128
  4. MYCOPHENOLATE MOFETIL [Suspect]
     Route: 048
     Dates: start: 20050129
  5. CYCLOSPORINE [Suspect]
     Route: 048
     Dates: start: 20040921, end: 20041013
  6. CYCLOSPORINE [Suspect]
     Route: 048
     Dates: start: 20041014
  7. CYCLOSPORINE [Suspect]
     Route: 048
     Dates: start: 20041019, end: 20050128
  8. PREDNISONE TAB [Suspect]
     Route: 048
     Dates: start: 20040922, end: 20041012
  9. PREDNISONE TAB [Suspect]
     Route: 048
     Dates: start: 20041013
  10. PREDNISONE TAB [Suspect]
     Route: 048
     Dates: start: 20041128
  11. PREDNISONE TAB [Suspect]
     Route: 048
     Dates: start: 20041229
  12. FUROSEMIDE [Concomitant]
     Route: 048
     Dates: start: 20040924
  13. RANUBER [Concomitant]
     Route: 048
     Dates: start: 20040923
  14. AUGMENTIN '125' [Concomitant]
     Route: 048
     Dates: start: 20041019, end: 20041208
  15. AUGMENTIN '125' [Concomitant]
     Route: 048
     Dates: start: 20041019, end: 20041208
  16. AMLODIPINO [Concomitant]
     Route: 048
     Dates: start: 20041102
  17. DARBEPOETIN ALFA [Concomitant]
     Dates: start: 20041103
  18. DOXAZOSINA [Concomitant]
     Dates: start: 20041227

REACTIONS (4)
  - COMPLICATIONS OF TRANSPLANTED KIDNEY [None]
  - CONGENITAL CYSTIC KIDNEY DISEASE [None]
  - CYTOMEGALOVIRUS INFECTION [None]
  - URINARY TRACT INFECTION [None]
